FAERS Safety Report 9115808 (Version 1)
Quarter: 2013Q1

REPORT INFORMATION
  Report Type: Report from Study
  Country: US (occurrence: US)
  Receive Date: 20130224
  Receipt Date: 20130224
  Transmission Date: 20140127
  Serious: Yes (Hospitalization, Other)
  Sender: FDA-Public Use
  Company Number: US-BRISTOL-MYERS SQUIBB COMPANY-16323107

PATIENT
  Age: 68 Year
  Sex: Male

DRUGS (4)
  1. IPILIMUMAB [Suspect]
     Indication: PROSTATE CANCER
     Dosage: W7 31JAN12,W10 21FEB12
     Route: 042
     Dates: start: 20111220, end: 20120221
  2. HYDROCHLOROTHIAZIDE [Concomitant]
     Dosage: 8DEC11:25 MG
     Dates: start: 200808
  3. ATENOLOL [Concomitant]
     Dosage: 100 MG:8DEC11
     Dates: start: 200808
  4. BENAZEPRIL HCL [Concomitant]
     Dates: start: 200808

REACTIONS (2)
  - Diarrhoea [Recovered/Resolved]
  - Pyrexia [Recovered/Resolved]
